FAERS Safety Report 17682408 (Version 3)
Quarter: 2020Q3

REPORT INFORMATION
  Report Type: Report from Study
  Country: None (occurrence: US)
  Receive Date: 20200418
  Receipt Date: 20200806
  Transmission Date: 20201102
  Serious: Yes (Other)
  Sender: FDA-Public Use
  Company Number: US-ABBVIE-20P-163-3368596-00

PATIENT
  Sex: Male

DRUGS (2)
  1. IMBRUVICA [Suspect]
     Active Substance: IBRUTINIB
     Route: 048
  2. IMBRUVICA [Suspect]
     Active Substance: IBRUTINIB
     Indication: CHRONIC LYMPHOCYTIC LEUKAEMIA
     Route: 048
     Dates: start: 20180521

REACTIONS (6)
  - Visual impairment [Unknown]
  - Asthenia [Unknown]
  - Neovascular age-related macular degeneration [Unknown]
  - Blood triglycerides increased [Unknown]
  - Glycosylated haemoglobin decreased [Unknown]
  - Rash macular [Unknown]
